FAERS Safety Report 17311441 (Version 1)
Quarter: 2020Q1

REPORT INFORMATION
  Report Type: Spontaneous
  Country: US (occurrence: US)
  Receive Date: 20200123
  Receipt Date: 20200123
  Transmission Date: 20200409
  Serious: No
  Sender: FDA-Public Use
  Company Number: US-ROCHE-2225237

PATIENT
  Sex: Female

DRUGS (2)
  1. RITUXAN [Suspect]
     Active Substance: RITUXIMAB
     Indication: LYMPHOMA
     Dosage: ONGOING: UNKNOWN,
     Route: 042
     Dates: start: 201811
  2. RITUXAN [Suspect]
     Active Substance: RITUXIMAB
     Dosage: SINCE 8 YEARS AGO
     Route: 042

REACTIONS (1)
  - Dyspnoea [Recovered/Resolved]
